FAERS Safety Report 4698281-2 (Version None)
Quarter: 2005Q2

REPORT INFORMATION
  Report Type: 
  Country: None (occurrence: None)
  Receive Date: 20050623
  Receipt Date: 20050603
  Transmission Date: 20051028
  Serious: Yes (Hospitalization)
  Sender: FDA-Public Use
  Company Number: IL-SANOFI-SYNTHELABO-F01200500892

PATIENT
  Sex: Female

DRUGS (9)
  1. OXALIPLATIN [Suspect]
     Indication: COLORECTAL CANCER METASTATIC
     Route: 042
     Dates: start: 20050509, end: 20050509
  2. FLUOROURACIL [Suspect]
     Dosage: 426 MG IV BOLUS AND 1470 MG IV CONTINUOUS INFUSION, Q2W
     Route: 042
     Dates: start: 20050509, end: 20050511
  3. LEUCOVORIN [Suspect]
     Route: 042
     Dates: start: 20050509, end: 20050510
  4. BEVACIZUMAB OR PLACEBO [Suspect]
     Route: 042
     Dates: start: 20050509, end: 20050509
  5. ALENDRONATE [Concomitant]
  6. CAPTOPRIL [Concomitant]
  7. OXYCODONE HCL [Concomitant]
  8. PERCOCET [Concomitant]
  9. AMITRIPTYLINE HCL [Concomitant]

REACTIONS (9)
  - ANOREXIA [None]
  - ASTHENIA [None]
  - BLOOD CULTURE POSITIVE [None]
  - DEHYDRATION [None]
  - GENERAL PHYSICAL HEALTH DETERIORATION [None]
  - HYPOKALAEMIA [None]
  - HYPONATRAEMIA [None]
  - KLEBSIELLA INFECTION [None]
  - ORAL CANDIDIASIS [None]
